FAERS Safety Report 22803445 (Version 2)
Quarter: 2023Q4

REPORT INFORMATION
  Report Type: Spontaneous
  Country: CA (occurrence: CA)
  Receive Date: 20230809
  Receipt Date: 20231009
  Transmission Date: 20240109
  Serious: Yes (Other)
  Sender: FDA-Public Use
  Company Number: CA-PFIZER INC-2017239790

PATIENT
  Age: 9 Year
  Sex: Female
  Weight: 44.6 kg

DRUGS (13)
  1. GENOTROPIN [Suspect]
     Active Substance: SOMATROPIN
     Indication: Growth hormone deficiency
     Dosage: 0.8 MG, 6 DAYS PER WEEK
     Route: 058
     Dates: start: 20170517
  2. GENOTROPIN [Suspect]
     Active Substance: SOMATROPIN
     Dosage: 1 MG, 6 DAYS PER WEEK (0.8MGDISCONTINUED)
     Route: 058
     Dates: start: 20170517
  3. GENOTROPIN [Suspect]
     Active Substance: SOMATROPIN
     Dosage: 1.05 MG, 6 DAYS PER WEEK
     Route: 058
  4. GENOTROPIN [Suspect]
     Active Substance: SOMATROPIN
     Dosage: 1.35 MG, 6 DAYS PER WEEK
     Route: 058
  5. GENOTROPIN [Suspect]
     Active Substance: SOMATROPIN
     Dosage: 1.5 FOR 4 DAYS GENOTROPIN (AND 1.65 MG FOR 2 DAYS WITH GOQUICK PEN)
  6. GENOTROPIN [Suspect]
     Active Substance: SOMATROPIN
     Dosage: 1 MG, 6 DAYS PER WEEK (1.05MGDISCONTINUED)
     Route: 058
  7. GENOTROPIN [Suspect]
     Active Substance: SOMATROPIN
     Dosage: 1.35 MG ,1 DF , 6 DAYS PER WEEK (1.35MGDISCONTINUED)
     Route: 058
  8. GENOTROPIN [Suspect]
     Active Substance: SOMATROPIN
     Dosage: 1650 UG  6 DAYS PER WEEK (GOQUICK)
     Route: 058
  9. DESMOPRESSIN [Concomitant]
     Active Substance: DESMOPRESSIN
     Dosage: 1 DF, 0.2MG QAM, 0.1MG QLUNCH, 0.2MG QPM
     Route: 048
  10. ESTROGENS [Concomitant]
     Active Substance: ESTROGENS
     Indication: Hormone replacement therapy
     Dosage: 0.5 MG
  11. PEDIAPRED [Concomitant]
     Active Substance: PREDNISOLONE SODIUM PHOSPHATE
     Dosage: 1 DF ,0.7 MG, Q AM AND 0.5MG Q PM
     Route: 048
  12. SYNTHROID [Concomitant]
     Active Substance: LEVOTHYROXINE SODIUM
     Dosage: 0.005 MG, 1X/DAY
     Route: 048
  13. SYNTHROID [Concomitant]
     Active Substance: LEVOTHYROXINE SODIUM
     Dosage: 1 DF (0.005MG)
     Route: 048

REACTIONS (6)
  - Acromegaly [Unknown]
  - Product dispensing error [Unknown]
  - Incorrect dose administered [Unknown]
  - Asthenia [Not Recovered/Not Resolved]
  - Glucose tolerance impaired [Not Recovered/Not Resolved]
  - Weight increased [Not Recovered/Not Resolved]

NARRATIVE: CASE EVENT DATE: 20230401
